FAERS Safety Report 4677282-4 (Version None)
Quarter: 2005Q2

REPORT INFORMATION
  Report Type: 
  Country: None (occurrence: None)
  Receive Date: 20050526
  Receipt Date: 20050517
  Transmission Date: 20051028
  Serious: Yes (Life-Threatening, Hospitalization, Disabling)
  Sender: FDA-Public Use
  Company Number: 2005-04-2298

PATIENT
  Age: 57 Year

DRUGS (3)
  1. DIPROSPAN INJECTABLE SUSPENSION (BETAMETHASONE SODIUM PHOSPHATE/DIPROP [Suspect]
     Indication: OSTEOCHONDROSIS
     Dosage: 2+5MG (1 ML) INTRAMUSCULA
     Dates: start: 20050317, end: 20050317
  2. SODIUM CHLORIDE [Suspect]
     Indication: OSTEOCHONDROSIS
     Dosage: 10 ML INTRAMUSCULAR
     Route: 030
     Dates: start: 20050317, end: 20050317
  3. LIDOCAINE [Suspect]
     Indication: OSTEOCHONDROSIS
     Dosage: 6 ML INTRAMUSCULAR
     Route: 030
     Dates: start: 20050317, end: 20050317

REACTIONS (15)
  - DRUG TOXICITY [None]
  - ENCEPHALITIS [None]
  - HYPERSENSITIVITY [None]
  - INJECTION SITE INFLAMMATION [None]
  - INJECTION SITE PAIN [None]
  - INJECTION SITE SWELLING [None]
  - LOCAL REACTION [None]
  - LYMPHOSTASIS [None]
  - POOR QUALITY DRUG ADMINISTERED [None]
  - PROTEIN URINE PRESENT [None]
  - PURULENCE [None]
  - RED BLOOD CELL SEDIMENTATION RATE INCREASED [None]
  - RED BLOOD CELLS URINE POSITIVE [None]
  - SEPSIS [None]
  - WHITE BLOOD CELLS URINE POSITIVE [None]
